FAERS Safety Report 5355187-3 (Version None)
Quarter: 2007Q2

REPORT INFORMATION
  Report Type: 
  Country: None (occurrence: None)
  Receive Date: 20070611
  Receipt Date: 20070530
  Transmission Date: 20071010
  Serious: No
  Sender: FDA-Public Use
  Company Number: 2007-159290-NL

PATIENT
  Sex: Male

DRUGS (7)
  1. MIRTAZAPINE [Suspect]
     Indication: DEPRESSION
     Dosage: 1 DF QD ORAL
     Route: 048
     Dates: start: 20070514, end: 20070516
  2. ALENDRONIC ACID [Concomitant]
  3. IBUPROFEN [Concomitant]
  4. LOPERAMIDE HYDROCHLORIDE [Concomitant]
  5. MERCAPTOPURINE [Concomitant]
  6. PREDNISOLONE [Concomitant]
  7. CARBOMER [Concomitant]

REACTIONS (4)
  - AGITATION [None]
  - AKATHISIA [None]
  - VISUAL BRIGHTNESS [None]
  - VISUAL DISTURBANCE [None]
